FAERS Safety Report 7953639-0 (Version None)
Quarter: 2011Q4

REPORT INFORMATION
  Report Type: 
  Country: None (occurrence: None)
  Receive Date: 20111202
  Receipt Date: 20111121
  Transmission Date: 20120403
  Serious: Yes (Hospitalization, Congenital Anomaly)
  Sender: FDA-Public Use
  Company Number: FR-ELI_LILLY_AND_COMPANY-FR201111006283

PATIENT
  Sex: Male
  Weight: 2.1 kg

DRUGS (12)
  1. HUMULIN N [Suspect]
     Dosage: 9 IU, EACH EVENING
     Route: 015
     Dates: start: 20101016, end: 20110228
  2. NOVORAPID [Concomitant]
     Dosage: 6 IU, EACH MORNING
     Route: 015
     Dates: start: 20101016, end: 20110228
  3. NOVORAPID [Concomitant]
     Dosage: 3 IU, OTHER
     Route: 015
     Dates: start: 20101016, end: 20110228
  4. HUMULIN N [Suspect]
     Dosage: 7 IU, EACH MORNING
     Route: 015
     Dates: start: 20101016, end: 20110228
  5. NOVORAPID [Concomitant]
     Dosage: 3 IU, OTHER
     Route: 015
     Dates: start: 20101016, end: 20110228
  6. HUMULIN N [Suspect]
     Dosage: 9 IU, EACH EVENING
     Route: 015
     Dates: start: 20101016, end: 20110228
  7. GLUCOPHAGE [Concomitant]
     Dosage: 1000 G, BID
     Route: 015
     Dates: end: 20111015
  8. GLUCOPHAGE [Concomitant]
     Dosage: 1000 G, BID
     Route: 015
     Dates: end: 20111015
  9. HUMULIN N [Suspect]
     Dosage: 7 IU, EACH MORNING
     Route: 015
     Dates: start: 20101016, end: 20110228
  10. NOVORAPID [Concomitant]
     Dosage: 5 IU, EACH EVENING
     Route: 015
     Dates: start: 20101016, end: 20110228
  11. NOVORAPID [Concomitant]
     Dosage: 6 IU, EACH MORNING
     Route: 015
     Dates: start: 20101016, end: 20110228
  12. NOVORAPID [Concomitant]
     Dosage: 5 IU, EACH EVENING
     Route: 015
     Dates: start: 20101016, end: 20110228

REACTIONS (2)
  - MATERNAL EXPOSURE DURING PREGNANCY [None]
  - FOETAL GROWTH RESTRICTION [None]
